FAERS Safety Report 7991341-X (Version None)
Quarter: 2011Q4

REPORT INFORMATION
  Report Type: 
  Country: None (occurrence: None)
  Receive Date: 20111219
  Receipt Date: 20111209
  Transmission Date: 20120403
  Serious: Yes (Hospitalization, Other)
  Sender: FDA-Public Use
  Company Number: US-BAYER-201018539NA

PATIENT
  Age: 16 Year
  Sex: Female
  Weight: 65.624 kg

DRUGS (11)
  1. YAZ [Suspect]
     Indication: OVARIAN CYST
  2. NAPROSYN [Concomitant]
  3. AMOXICILLIN [Concomitant]
  4. HYDROCODONE [Concomitant]
  5. VERAMYST [Concomitant]
  6. DROSPIRENONE AND ETHINYL ESTRADIOL [Suspect]
     Indication: PROPHYLAXIS
  7. MAGNESIUM HYDROXIDE TAB [Concomitant]
  8. NIACIN [Concomitant]
  9. YASMIN [Suspect]
     Indication: PROPHYLAXIS
  10. YAZ [Suspect]
     Indication: PROPHYLAXIS
     Dosage: UNK UNK, UNK
     Route: 048
     Dates: start: 20080519, end: 20091116
  11. YAZ [Suspect]
     Indication: MENSTRUAL CYCLE MANAGEMENT

REACTIONS (6)
  - PANCREATITIS ACUTE [None]
  - EMOTIONAL DISTRESS [None]
  - MENTAL DISORDER [None]
  - CHOLECYSTITIS CHRONIC [None]
  - PANCREATITIS [None]
  - PAIN [None]
